FAERS Safety Report 9734090 (Version 2)
Quarter: 2013Q4

REPORT INFORMATION
  Report Type: Spontaneous
  Country: US (occurrence: US)
  Receive Date: 20131205
  Receipt Date: 20131223
  Transmission Date: 20140711
  Serious: Yes (Hospitalization, Other)
  Sender: FDA-Public Use
  Company Number: US-BAXTER-2013BAX048089

PATIENT
  Age: 71 Year
  Sex: Male

DRUGS (1)
  1. 0.9% SODIUM CHLORIDE INJECTION [Suspect]
     Indication: PRODUCT USED FOR UNKNOWN INDICATION
     Route: 042

REACTIONS (4)
  - Staphylococcal sepsis [Recovering/Resolving]
  - Fistula discharge [Recovered/Resolved]
  - Arteriovenous fistula thrombosis [Unknown]
  - Purulent discharge [Recovered/Resolved]
